FAERS Safety Report 9234123 (Version 3)
Quarter: 2013Q4

REPORT INFORMATION
  Report Type: Spontaneous
  Country: US (occurrence: None)
  Receive Date: 20121031
  Receipt Date: 20131226
  Transmission Date: 20140711
  Serious: Yes (Other)
  Sender: FDA-Public Use
  Company Number: PHEH2012US015480

PATIENT
  Age: 63 Year
  Sex: Female

DRUGS (1)
  1. GILENYA [Suspect]
     Indication: MULTIPLE SCLEROSIS
     Route: 048
     Dates: start: 20120724, end: 20121104

REACTIONS (10)
  - Balance disorder [None]
  - Malaise [None]
  - Dizziness [None]
  - Asthenia [None]
  - Vision blurred [None]
  - Diarrhoea [None]
  - Macular oedema [None]
  - Intervertebral disc degeneration [None]
  - Back pain [None]
  - Feeling abnormal [None]
